FAERS Safety Report 5388058-7 (Version None)
Quarter: 2007Q3

REPORT INFORMATION
  Report Type: 
  Country: None (occurrence: None)
  Receive Date: 20070716
  Receipt Date: 20070706
  Transmission Date: 20080115
  Serious: Yes (Congenital Anomaly)
  Sender: FDA-Public Use
  Company Number: CH-ROCHE-473719

PATIENT
  Sex: Male
  Weight: 3 kg

DRUGS (5)
  1. INVIRASE [Suspect]
     Indication: HIV INFECTION
     Dates: start: 20060719, end: 20070509
  2. NORVIR [Concomitant]
     Indication: HIV INFECTION
     Dates: start: 20060719
  3. COMBIVIR [Concomitant]
     Indication: HIV INFECTION
     Dates: start: 19990201
  4. ZYPREXA [Concomitant]
     Dates: start: 20050101
  5. AMOXICILLIN [Concomitant]
     Dates: start: 20060908, end: 20060914

REACTIONS (1)
  - KLINEFELTER'S SYNDROME [None]
